FAERS Safety Report 7814253-0 (Version None)
Quarter: 2011Q4

REPORT INFORMATION
  Report Type: 
  Country: None (occurrence: None)
  Receive Date: 20111014
  Receipt Date: 20110930
  Transmission Date: 20120403
  Serious: Yes (Death, Hospitalization)
  Sender: FDA-Public Use
  Company Number: GB-TEVA-263275ISR

PATIENT
  Sex: Male

DRUGS (14)
  1. AMOXICILLIN AND CLAVULANATE POTASSIUM [Concomitant]
     Route: 048
  2. FERROUS SULFATE TAB [Concomitant]
     Dates: start: 20030703
  3. CYCLIZINE [Concomitant]
     Dates: start: 20090101
  4. ASPIRIN [Concomitant]
     Dates: start: 20110316
  5. PREDNISOLONE [Suspect]
     Dates: start: 20020926
  6. ALBUTEROL [Concomitant]
     Dates: start: 20030428
  7. MYCOPHENOLIC ACID [Suspect]
     Dates: start: 20020926
  8. VALSARTAN [Concomitant]
     Dates: start: 20050705
  9. FLUTICASONE PROPIONATE [Concomitant]
     Dates: start: 20020926
  10. EZETIMIBE [Concomitant]
     Dates: start: 20071215
  11. OXITROPIUM BROMIDE [Concomitant]
     Dates: start: 20030426
  12. BELATACEPT [Suspect]
     Indication: RENAL TRANSPLANT
     Route: 042
     Dates: start: 20020926
  13. ACETAMINOPHEN [Concomitant]
     Dates: start: 20081229
  14. GABAPENTIN [Concomitant]
     Dates: start: 20101124

REACTIONS (11)
  - ENTEROCOCCAL SEPSIS [None]
  - LYMPHOMA [None]
  - CERVICAL MYELOPATHY [None]
  - SALIVARY GLAND MASS [None]
  - URINARY TRACT INFECTION [None]
  - CARDIAC ARREST [None]
  - SPINAL CORD COMPRESSION [None]
  - UROSEPSIS [None]
  - SPONDYLITIC MYELOPATHY [None]
  - HYPOACUSIS [None]
  - EPSTEIN-BARR VIRUS ASSOCIATED LYMPHOPROLIFERATIVE DISORDER [None]
